FAERS Safety Report 14779644 (Version 5)
Quarter: 2019Q2

REPORT INFORMATION
  Report Type: Spontaneous
  Country: US (occurrence: US)
  Receive Date: 20180419
  Receipt Date: 20190417
  Transmission Date: 20190711
  Serious: Yes (Hospitalization, Other)
  Sender: FDA-Public Use
  Company Number: US-PFIZER INC-2018157011

PATIENT
  Age: 47 Year
  Sex: Female
  Weight: 73.94 kg

DRUGS (14)
  1. ZOLOFT [Suspect]
     Active Substance: SERTRALINE HYDROCHLORIDE
     Indication: ANXIETY
     Dosage: 50 MG, UNK
  2. ATIVAN [Concomitant]
     Active Substance: LORAZEPAM
     Indication: PANIC ATTACK
     Dosage: SEVERAL TIMES A DAY
     Dates: start: 199802, end: 199804
  3. ATIVAN [Concomitant]
     Active Substance: LORAZEPAM
     Indication: ANXIETY
  4. TRILAFON [Concomitant]
     Active Substance: PERPHENAZINE
     Indication: DISTURBANCE IN ATTENTION
  5. TRILAFON [Concomitant]
     Active Substance: PERPHENAZINE
     Indication: PARANOIA
  6. ZOLOFT [Suspect]
     Active Substance: SERTRALINE HYDROCHLORIDE
     Dosage: 200 MG, 1X/DAY
     Dates: start: 201803
  7. TRILAFON [Concomitant]
     Active Substance: PERPHENAZINE
     Indication: NIGHTMARE
  8. TRILAFON [Concomitant]
     Active Substance: PERPHENAZINE
     Indication: CONFUSIONAL STATE
     Dosage: UNK
     Dates: start: 199802, end: 199804
  9. TRILAFON [Concomitant]
     Active Substance: PERPHENAZINE
     Indication: MEMORY IMPAIRMENT
  10. ZOLOFT [Suspect]
     Active Substance: SERTRALINE HYDROCHLORIDE
     Indication: POST-TRAUMATIC STRESS DISORDER
     Dosage: 100 MG, 1X/DAY
  11. ZOLOFT [Suspect]
     Active Substance: SERTRALINE HYDROCHLORIDE
     Indication: SUICIDAL IDEATION
     Dosage: 150 MG, 1X/DAY
     Dates: start: 2016
  12. STRATTERA [Concomitant]
     Active Substance: ATOMOXETINE HYDROCHLORIDE
     Indication: ATTENTION DEFICIT/HYPERACTIVITY DISORDER
     Dosage: 100 MG, DAILY
     Route: 048
     Dates: start: 2008
  13. WELLBUTRIN [Concomitant]
     Active Substance: BUPROPION HYDROCHLORIDE
     Dosage: UNK
     Dates: start: 200604, end: 200608
  14. ZOLOFT [Suspect]
     Active Substance: SERTRALINE HYDROCHLORIDE
     Indication: DEPRESSION
     Dosage: 25 MG, UNK
     Dates: start: 199802

REACTIONS (4)
  - Drug dependence [Recovering/Resolving]
  - Therapeutic product effect incomplete [Recovering/Resolving]
  - Dyspepsia [Not Recovered/Not Resolved]
  - Dry mouth [Not Recovered/Not Resolved]

NARRATIVE: CASE EVENT DATE: 1998
